FAERS Safety Report 9370066 (Version 2)
Quarter: 2013Q3

REPORT INFORMATION
  Report Type: Spontaneous
  Country: FR (occurrence: FR)
  Receive Date: 20130626
  Receipt Date: 20130703
  Transmission Date: 20140515
  Serious: Yes (Death)
  Sender: FDA-Public Use
  Company Number: FR-B.I. PHARMACEUTICALS,INC./RIDGEFIELD-2013-FF-01721FF

PATIENT
  Sex: Male

DRUGS (9)
  1. PRADAXA [Suspect]
     Indication: ATRIAL FIBRILLATION
     Dosage: 220 MG
     Route: 048
  2. CARDENSIEL [Concomitant]
  3. FENOFIBRATE [Concomitant]
  4. JOSIR [Concomitant]
  5. TRIATEC [Concomitant]
  6. MOPRAL [Concomitant]
  7. BROMAZEPAM [Concomitant]
  8. IXPRIM [Concomitant]
  9. SOLIAN [Concomitant]

REACTIONS (2)
  - Ischaemic stroke [Fatal]
  - Pneumonia [Unknown]
